FAERS Safety Report 25998711 (Version 1)
Quarter: 2025Q4

REPORT INFORMATION
  Report Type: Report from Study
  Country: US (occurrence: US)
  Receive Date: 20251105
  Receipt Date: 20251105
  Transmission Date: 20260117
  Serious: Yes (Other)
  Sender: LEO PHARM
  Company Number: US-LEO Pharma-383583

PATIENT
  Age: 17 Year
  Sex: Female

DRUGS (2)
  1. ADBRY [Suspect]
     Active Substance: TRALOKINUMAB-LDRM
     Indication: Dermatitis atopic
     Route: 058
  2. ADBRY [Suspect]
     Active Substance: TRALOKINUMAB-LDRM
     Indication: Dermatitis atopic
     Dosage: LOADING DOSE OF TWO 150 MG SYRINGES
     Route: 058
     Dates: start: 20250927, end: 20250927

REACTIONS (4)
  - Ear infection [Recovered/Resolved]
  - Pneumonia [Recovered/Resolved]
  - Ocular hyperaemia [Unknown]
  - Eye pruritus [Unknown]
